FAERS Safety Report 4263714-2 (Version None)
Quarter: 2004Q1

REPORT INFORMATION
  Report Type: 
  Country: None (occurrence: None)
  Receive Date: 20040102
  Receipt Date: 20031222
  Transmission Date: 20041129
  Serious: Yes (Hospitalization, Other)
  Sender: FDA-Public Use
  Company Number: EM2003-0331

PATIENT
  Age: 45 Year
  Sex: Female

DRUGS (2)
  1. PROLEUKIN [Suspect]
     Indication: MALIGNANT MELANOMA
     Dosage: 9 MIU/M2, BID, D1-2, WKS 1+3, SUBCUTAN. ; 2 MIU/M2, BID, D1-5, WKS 2+4, SUBCUTAN.
     Route: 058
     Dates: start: 20030908, end: 20031002
  2. PROLEUKIN [Suspect]
     Indication: MALIGNANT MELANOMA
     Dosage: 9 MIU/M2, BID, D1-2, WKS 1+3, SUBCUTAN. ; 2 MIU/M2, BID, D1-5, WKS 2+4, SUBCUTAN.
     Route: 058
     Dates: start: 20030908, end: 20031002

REACTIONS (7)
  - ANOREXIA [None]
  - CONVULSION [None]
  - HYPERTHYROIDISM [None]
  - MALIGNANT NEOPLASM PROGRESSION [None]
  - METASTASES TO CENTRAL NERVOUS SYSTEM [None]
  - NAUSEA [None]
  - VOMITING [None]
